FAERS Safety Report 5999233-2 (Version None)
Quarter: 2008Q4

REPORT INFORMATION
  Report Type: 
  Country: None (occurrence: None)
  Receive Date: 20081211
  Receipt Date: 20081126
  Transmission Date: 20090506
  Serious: Yes (Hospitalization)
  Sender: FDA-Public Use
  Company Number: KV200800689

PATIENT
  Age: 68 Year
  Sex: Male
  Weight: 80.7 kg

DRUGS (11)
  1. ISOSORBIDE DINITRATE [Suspect]
     Indication: ANGINA PECTORIS
     Dosage: 60MG, QD, ORAL
     Route: 048
     Dates: start: 19940101
  2. TARKA [Concomitant]
  3. PREVACID [Concomitant]
  4. CRESTOR [Concomitant]
  5. ATENOLOL [Concomitant]
  6. PLAVIX [Concomitant]
  7. FUROSEMIDE [Concomitant]
  8. HYDROCODONE BITARTRATE [Concomitant]
  9. RESTORIL [Concomitant]
  10. LORAZEPAM [Concomitant]
  11. DIGOXIN [Concomitant]

REACTIONS (7)
  - CONVULSION [None]
  - DIZZINESS [None]
  - FALL [None]
  - FRACTURE [None]
  - HEADACHE [None]
  - PRODUCT QUALITY ISSUE [None]
  - RIB FRACTURE [None]
